FAERS Safety Report 6570881-4 (Version None)
Quarter: 2010Q1

REPORT INFORMATION
  Report Type: 
  Country: None (occurrence: None)
  Receive Date: 20100204
  Receipt Date: 20100126
  Transmission Date: 20100710
  Serious: Yes (Other)
  Sender: FDA-Public Use
  Company Number: PT-WYE-H13149410

PATIENT
  Age: 72 Year
  Sex: Female

DRUGS (1)
  1. TAZOCIN [Suspect]
     Indication: HISTIOCYTOSIS HAEMATOPHAGIC
     Dosage: UNKNOWN
     Route: 042

REACTIONS (3)
  - DRUG INEFFECTIVE [None]
  - MULTI-ORGAN FAILURE [None]
  - SEPTIC SHOCK [None]
